FAERS Safety Report 5207932-5 (Version None)
Quarter: 2007Q1

REPORT INFORMATION
  Report Type: 
  Country: None (occurrence: None)
  Receive Date: 20070115
  Receipt Date: 20070103
  Transmission Date: 20070707
  Serious: Yes (Hospitalization)
  Sender: FDA-Public Use
  Company Number: PHEH2007US00552

PATIENT
  Sex: Female

DRUGS (1)
  1. DIOVAN [Suspect]

REACTIONS (5)
  - DYSPNOEA [None]
  - HYPERTENSION [None]
  - NAUSEA [None]
  - TINNITUS [None]
  - VERTIGO [None]
